FAERS Safety Report 9349706 (Version 1)
Quarter: 2013Q2

REPORT INFORMATION
  Report Type: Spontaneous
  Country: BR (occurrence: BR)
  Receive Date: 20130614
  Receipt Date: 20130614
  Transmission Date: 20140414
  Serious: Yes (Other)
  Sender: FDA-Public Use
  Company Number: BR-009507513-1306BRA005370

PATIENT
  Age: 67 Year
  Sex: Female

DRUGS (2)
  1. ALENDRONATE SODIUM [Suspect]
     Indication: OSTEOPOROSIS
     Dosage: 70 MG, QW
     Route: 048
  2. CALCIUM (UNSPECIFIED) [Concomitant]
     Dosage: 600 MG, QD

REACTIONS (1)
  - Osteonecrosis [Recovered/Resolved]
